FAERS Safety Report 11683894 (Version 1)
Quarter: 2015Q4

REPORT INFORMATION
  Report Type: Spontaneous
  Country: US (occurrence: US)
  Receive Date: 20151029
  Receipt Date: 20151029
  Transmission Date: 20160304
  Serious: No
  Sender: FDA-Public Use
  Company Number: US-BAYER-2015-452154

PATIENT
  Age: 74 Year
  Sex: Female
  Weight: 68.27 kg

DRUGS (3)
  1. BAYER LOW DOSE [Concomitant]
     Active Substance: ASPIRIN
  2. CLARITIN REDITABS [Suspect]
     Active Substance: LORATADINE
     Indication: PARANASAL SINUS HYPERSECRETION
     Dosage: UNK
     Route: 048
     Dates: start: 20151012
  3. I-VITE [Concomitant]
     Indication: PARANASAL SINUS HYPERSECRETION
     Dosage: EVERY OTHER DAY

REACTIONS (3)
  - Intentional product use issue [None]
  - Product use issue [None]
  - Therapeutic response unexpected [None]

NARRATIVE: CASE EVENT DATE: 20151012
